FAERS Safety Report 5342330-5 (Version None)
Quarter: 2007Q2

REPORT INFORMATION
  Report Type: 
  Country: None (occurrence: None)
  Receive Date: 20070601
  Receipt Date: 20070523
  Transmission Date: 20071010
  Serious: Yes (Other)
  Sender: FDA-Public Use
  Company Number: JP-ASTRAZENECA-2007AP03096

PATIENT
  Age: 48 Year
  Sex: Male

DRUGS (1)
  1. ANAPEINE [Suspect]
     Indication: NERVE BLOCK
     Route: 008

REACTIONS (4)
  - CLONIC CONVULSION [None]
  - ELECTROCARDIOGRAM QRS COMPLEX PROLONGED [None]
  - ELECTROCARDIOGRAM T WAVE AMPLITUDE INCREASED [None]
  - SINUS TACHYCARDIA [None]
